FAERS Safety Report 8381954-8 (Version None)
Quarter: 2012Q1

REPORT INFORMATION
  Report Type: 
  Country: None (occurrence: None)
  Receive Date: 20120323
  Receipt Date: 20110803
  Transmission Date: 20120608
  Serious: Yes (Hospitalization, Other)
  Sender: FDA-Public Use
  Company Number: 163-21880-11051775

PATIENT
  Age: 74 Year
  Sex: Male

DRUGS (9)
  1. VALTREX [Concomitant]
  2. DEXAMETHASONE [Concomitant]
  3. OMEPRAZOLE [Concomitant]
  4. REVLIMID [Suspect]
     Indication: MULTIPLE MYELOMA
     Dosage: 10 MG, DAILY X21 DAYS Q 28 DAYS, PO ; 10 MG, DAILY X21 DAYS Q 28 DAYS, PO
     Route: 048
     Dates: start: 20110401
  5. REVLIMID [Suspect]
     Indication: MULTIPLE MYELOMA
     Dosage: 10 MG, DAILY X21 DAYS Q 28 DAYS, PO ; 10 MG, DAILY X21 DAYS Q 28 DAYS, PO
     Route: 048
     Dates: start: 20110401, end: 20110401
  6. PROTONIX [Concomitant]
  7. ASPIRIN [Concomitant]
  8. LASIX [Concomitant]
  9. POTASSIUM CHLORIDE [Concomitant]

REACTIONS (2)
  - NEUTROPENIA [None]
  - PNEUMONIA BACTERIAL [None]
